FAERS Safety Report 10354949 (Version 1)
Quarter: 2014Q3

REPORT INFORMATION
  Report Type: Spontaneous
  Country: US (occurrence: None)
  Receive Date: 20140729
  Receipt Date: 20140729
  Transmission Date: 20150326
  Serious: No
  Sender: FDA-Public Use
  Company Number: None

PATIENT
  Age: 81 Year
  Sex: Male
  Weight: 70.31 kg

DRUGS (1)
  1. BUPIVACAINE\CYCLOBENZAPRINE\FLUTICASONE\GABAPENTIN\KETAMINE\KETOPROFEN [Suspect]
     Active Substance: BUPIVACAINE\CYCLOBENZAPRINE\FLUTICASONE\GABAPENTIN\KETAMINE\KETOPROFEN
     Indication: MUSCULOSKELETAL PAIN
     Dosage: APPROX 7 DAYS 1-3 GRAMS, THREE TIMES DAILY, APPLIED TO A SURFACE USUALLY THE SKIN

REACTIONS (2)
  - Economic problem [None]
  - Drug ineffective [None]

NARRATIVE: CASE EVENT DATE: 20140416
